FAERS Safety Report 23963353 (Version 1)
Quarter: 2024Q2

REPORT INFORMATION
  Report Type: Spontaneous
  Country: GB (occurrence: GB)
  Receive Date: 20240611
  Receipt Date: 20240611
  Transmission Date: 20240715
  Serious: Yes (Other)
  Sender: FDA-Public Use
  Company Number: None

PATIENT
  Age: 40 Year
  Sex: Female
  Weight: 71 kg

DRUGS (7)
  1. MONTELUKAST SODIUM [Suspect]
     Active Substance: MONTELUKAST SODIUM
     Indication: Asthma
     Dosage: UNK
     Dates: start: 20240306, end: 20240530
  2. GABAPENTIN [Concomitant]
     Active Substance: GABAPENTIN
     Indication: Periodic limb movement disorder
     Dosage: UNK
     Dates: start: 20190908
  3. LORATADINE [Concomitant]
     Active Substance: LORATADINE
     Indication: Seasonal allergy
     Dosage: UNK
     Dates: start: 20160308
  4. CITALOPRAM [Concomitant]
     Active Substance: CITALOPRAM\CITALOPRAM HYDROBROMIDE
     Indication: Adverse drug reaction
     Dosage: UNK
     Dates: start: 20230408, end: 20240430
  5. ESCITALOPRAM [Concomitant]
     Active Substance: ESCITALOPRAM OXALATE
     Indication: Adverse drug reaction
     Dosage: UNK
     Dates: start: 20240501
  6. MELOXICAM [Concomitant]
     Active Substance: MELOXICAM
     Indication: Ehlers-Danlos syndrome
     Dosage: UNK
     Dates: start: 20130908
  7. NEFOPAM [Concomitant]
     Active Substance: NEFOPAM
     Indication: Ehlers-Danlos syndrome
     Dosage: UNK
     Dates: start: 20170408

REACTIONS (4)
  - Mood swings [Not Recovered/Not Resolved]
  - Anxiety [Not Recovered/Not Resolved]
  - Paranoia [Recovering/Resolving]
  - Executive dysfunction [Recovering/Resolving]

NARRATIVE: CASE EVENT DATE: 20240401
